FAERS Safety Report 8444087-8 (Version None)
Quarter: 2012Q2

REPORT INFORMATION
  Report Type: 
  Country: None (occurrence: None)
  Receive Date: 20120611
  Receipt Date: 20120607
  Transmission Date: 20120825
  Serious: Yes (Other)
  Sender: FDA-Public Use
  Company Number: ADR-2012-00904

PATIENT
  Sex: Female

DRUGS (3)
  1. BACLOFEN [Suspect]
     Indication: HEAD INJURY
  2. BACLOFEN [Suspect]
     Indication: MUSCLE SPASTICITY
  3. BACLOFEN [Suspect]
     Indication: BRAIN INJURY

REACTIONS (3)
  - WEIGHT FLUCTUATION [None]
  - INJURY [None]
  - IMPLANT SITE SCAR [None]
